FAERS Safety Report 5266728-9 (Version None)
Quarter: 2007Q1

REPORT INFORMATION
  Report Type: 
  Country: None (occurrence: None)
  Receive Date: 20070312
  Receipt Date: 20070301
  Transmission Date: 20070707
  Serious: Yes (Hospitalization, Other)
  Sender: FDA-Public Use
  Company Number: 237570

PATIENT
  Age: 26 Year
  Sex: Female

DRUGS (1)
  1. ALTEPLASE (ALTEPLASE) PWDR + SOLVENT, INFUSION SOLN [Suspect]
     Indication: CEREBRAL ARTERY OCCLUSION
     Dosage: 0.9 MG/KG, SINGLE, INTRAVENOUS
     Route: 042

REACTIONS (5)
  - ANTIPHOSPHOLIPID SYNDROME [None]
  - CEREBRAL ARTERY OCCLUSION [None]
  - DRUG EXPOSURE DURING PREGNANCY [None]
  - ISCHAEMIC CEREBRAL INFARCTION [None]
  - PREMATURE LABOUR [None]
